FAERS Safety Report 21519753 (Version 1)
Quarter: 2022Q4

REPORT INFORMATION
  Report Type: Report from Study
  Country: US (occurrence: US)
  Receive Date: 20221028
  Receipt Date: 20221028
  Transmission Date: 20230113
  Serious: Yes (Other)
  Sender: FDA-Public Use
  Company Number: US-KOREA IPSEN Pharma-2022-29130

PATIENT
  Age: 46 Year
  Sex: Female

DRUGS (1)
  1. SOMATULINE DEPOT [Suspect]
     Active Substance: LANREOTIDE ACETATE
     Indication: Carcinoid tumour of the stomach
     Dosage: 120 MG
     Route: 058
     Dates: start: 202011, end: 202205

REACTIONS (2)
  - Blood glucose increased [Not Recovered/Not Resolved]
  - Alopecia [Not Recovered/Not Resolved]
